FAERS Safety Report 17302286 (Version 1)
Quarter: 2020Q1

REPORT INFORMATION
  Report Type: Report from Study
  Country: US (occurrence: US)
  Receive Date: 20200122
  Receipt Date: 20200122
  Transmission Date: 20200409
  Serious: Yes (Death, Hospitalization, Other)
  Sender: FDA-Public Use
  Company Number: US-MYLANLABS-2020M1006912

PATIENT
  Age: 73 Year
  Sex: Male
  Weight: 91 kg

DRUGS (17)
  1. PREDNISONE. [Suspect]
     Active Substance: PREDNISONE
     Indication: PRODUCT USED FOR UNKNOWN INDICATION
     Dosage: 5 MILLIGRAM, BID
     Route: 048
     Dates: start: 201512
  2. ABIRATERONE. [Suspect]
     Active Substance: ABIRATERONE ACETATE
     Indication: PRODUCT USED FOR UNKNOWN INDICATION
     Dosage: 250 MILLIGRAM, QID
     Route: 048
     Dates: start: 201512
  3. TYLENOL [Concomitant]
     Active Substance: ACETAMINOPHEN
     Dosage: UNK
     Dates: start: 20170228
  4. PREDNISONE. [Suspect]
     Active Substance: PREDNISONE
     Dosage: 5 MILLIGRAM, QD
     Route: 048
     Dates: start: 20170508, end: 20170903
  5. METOPROLOL SUCCINATE. [Suspect]
     Active Substance: METOPROLOL SUCCINATE
     Indication: PRODUCT USED FOR UNKNOWN INDICATION
     Dosage: 25 MILLIGRAM, QD
     Dates: start: 20170404
  6. COMPAZINE                          /00013304/ [Concomitant]
     Active Substance: PROCHLORPERAZINE MALEATE
     Dosage: UNK
  7. VITAMIN D3 [Concomitant]
     Active Substance: CHOLECALCIFEROL
     Dosage: UNK
     Dates: start: 20160210
  8. CRESTOR [Concomitant]
     Active Substance: ROSUVASTATIN CALCIUM
     Dosage: UNK
     Dates: start: 20160210
  9. NYSTATIN. [Concomitant]
     Active Substance: NYSTATIN
     Dosage: UNK
  10. HYDROCODONE [Concomitant]
     Active Substance: HYDROCODONE
     Dosage: UNK
  11. PREDNISONE. [Suspect]
     Active Substance: PREDNISONE
     Dosage: 5 MILLIGRAM, BID
     Route: 048
     Dates: start: 20170421
  12. IMDUR [Concomitant]
     Active Substance: ISOSORBIDE MONONITRATE
     Dosage: UNK
  13. ASPIRIN (E.C.) [Concomitant]
     Active Substance: ASPIRIN
     Dosage: UNK
     Dates: start: 20160210
  14. LOPRESSOR [Concomitant]
     Active Substance: METOPROLOL TARTRATE
     Dosage: UNK
  15. ENZALUTAMIDE [Suspect]
     Active Substance: ENZALUTAMIDE
     Indication: HORMONE-REFRACTORY PROSTATE CANCER
     Dosage: 160 MILLIGRAM, QD
     Route: 048
     Dates: start: 20160119, end: 20161101
  16. ABIRATERONE. [Suspect]
     Active Substance: ABIRATERONE ACETATE
     Dosage: 1000 MILLIGRAM, QD
     Route: 048
     Dates: start: 20170421, end: 20170903
  17. ACYCLOVIR STADA [Concomitant]
     Dosage: UNK

REACTIONS (9)
  - Death [Fatal]
  - Myocardial infarction [Recovered/Resolved]
  - Fatigue [Not Recovered/Not Resolved]
  - Haemorrhage [Unknown]
  - Oedema peripheral [Unknown]
  - Febrile neutropenia [Unknown]
  - Urinary tract infection [Unknown]
  - Haematuria [Unknown]
  - Limb discomfort [Recovered/Resolved]

NARRATIVE: CASE EVENT DATE: 2017
